FAERS Safety Report 24212349 (Version 1)
Quarter: 2024Q3

REPORT INFORMATION
  Report Type: Spontaneous
  Country: FR (occurrence: FR)
  Receive Date: 20240815
  Receipt Date: 20240815
  Transmission Date: 20241017
  Serious: Yes (Death, Other)
  Sender: CHEPLAPHARM
  Company Number: None

PATIENT
  Age: 69 Year
  Sex: Male
  Weight: 73 kg

DRUGS (5)
  1. GANCICLOVIR [Suspect]
     Active Substance: GANCICLOVIR
     Indication: Cytomegalovirus infection
     Dosage: DAILY DOSE: 180 MILLIGRAM
     Route: 042
     Dates: start: 20240225, end: 20240421
  2. GANCICLOVIR [Suspect]
     Active Substance: GANCICLOVIR
     Indication: Cytomegalovirus infection
     Dosage: X2?DAILY DOSE: 700 MILLIGRAM
     Route: 042
  3. ATOVAQUONE [Suspect]
     Active Substance: ATOVAQUONE
     Indication: Pneumonia
     Dosage: 750 MG X2/D?DAILY DOSE: 1500
     Route: 048
     Dates: start: 20240225, end: 20240321
  4. INSULIN NOS [Concomitant]
     Active Substance: INSULIN NOS
  5. OFEV [Concomitant]
     Active Substance: NINTEDANIB
     Dates: start: 202211

REACTIONS (5)
  - Respiratory failure [Fatal]
  - Haemodynamic instability [Fatal]
  - Leukopenia [Unknown]
  - Neutropenia [Recovered/Resolved]
  - Congenital aplasia [Unknown]

NARRATIVE: CASE EVENT DATE: 20240308
